FAERS Safety Report 5373389-7 (Version None)
Quarter: 2007Q2

REPORT INFORMATION
  Report Type: 
  Country: None (occurrence: None)
  Receive Date: 20070626
  Receipt Date: 20070626
  Transmission Date: 20071010
  Serious: Yes (Other)
  Sender: FDA-Public Use
  Company Number: None

PATIENT
  Sex: Female
  Weight: 98.4306 kg

DRUGS (2)
  1. HYDROCHLOROTHIAZIDE [Suspect]
     Indication: HYPERTENSION
     Dosage: 12.5 MG CAPSULES  1 DAILY  PO
     Route: 048
     Dates: start: 20061104, end: 20070619
  2. HYDROCHLOROTHIAZIDE [Suspect]
     Indication: SWELLING
     Dosage: 12.5 MG CAPSULES  1 DAILY  PO
     Route: 048
     Dates: start: 20061104, end: 20070619

REACTIONS (2)
  - BACK PAIN [None]
  - PANCREATITIS ACUTE [None]
